FAERS Safety Report 19105339 (Version 1)
Quarter: 2021Q2

REPORT INFORMATION
  Report Type: Spontaneous
  Country: US (occurrence: US)
  Receive Date: 20210407
  Receipt Date: 20210407
  Transmission Date: 20210717
  Serious: No
  Sender: FDA-Public Use
  Company Number: NVSC2021US075477

PATIENT
  Sex: Male

DRUGS (1)
  1. TASIGNA [Suspect]
     Active Substance: NILOTINIB
     Indication: PRODUCT USED FOR UNKNOWN INDICATION
     Dosage: 200 MG, QD (TABLET)
     Route: 065

REACTIONS (5)
  - Abdominal distension [Unknown]
  - Abdominal discomfort [Unknown]
  - Swelling [Unknown]
  - Diarrhoea [Unknown]
  - Pancreatic disorder [Unknown]
